FAERS Safety Report 7865984-8 (Version None)
Quarter: 2011Q4

REPORT INFORMATION
  Report Type: 
  Country: None (occurrence: None)
  Receive Date: 20111028
  Receipt Date: 20110401
  Transmission Date: 20120403
  Serious: No
  Sender: FDA-Public Use
  Company Number: US-GLAXOSMITHKLINE-A0921113A

PATIENT
  Age: 73 Year
  Sex: Male

DRUGS (7)
  1. ADVAIR DISKUS 100/50 [Suspect]
     Indication: DIAPHRAGMATIC DISORDER
     Dosage: 1PUFF TWICE PER DAY
     Route: 055
     Dates: start: 20110222, end: 20110331
  2. SIMVASTATIN [Concomitant]
  3. FINASTERIDE [Concomitant]
  4. FLUOXETINE HCL [Concomitant]
  5. NEURONTIN [Concomitant]
  6. CYCLOPHOSPHAMIDE [Concomitant]
  7. LISINOPRIL [Concomitant]

REACTIONS (2)
  - DYSPEPSIA [None]
  - CHEST PAIN [None]
